FAERS Safety Report 8609753-X (Version None)
Quarter: 2012Q3

REPORT INFORMATION
  Report Type: 
  Country: None (occurrence: None)
  Receive Date: 20120821
  Receipt Date: 20120810
  Transmission Date: 20120928
  Serious: Yes (Hospitalization)
  Sender: FDA-Public Use
  Company Number: BR-BRISTOL-MYERS SQUIBB COMPANY-15320385

PATIENT
  Age: 46 Year
  Sex: Female
  Weight: 68 kg

DRUGS (28)
  1. COMBIVIR [Suspect]
     Indication: HIV INFECTION
     Route: 048
     Dates: start: 20091019
  2. KETOPROFEN [Concomitant]
     Indication: NEPHROLITHIASIS
     Dosage: 1OCT10-01OCT10,07OCT10-13OCT2010.
     Dates: start: 20101001, end: 20101013
  3. METOCLOPRAMIDE [Concomitant]
     Indication: ANXIETY
     Dates: start: 20101001, end: 20101001
  4. MORPHINE [Concomitant]
     Indication: BACK PAIN
     Dates: start: 20101001, end: 20101001
  5. DIAZEPAM [Concomitant]
     Indication: ANXIETY
     Dates: start: 20101001, end: 20101001
  6. KETOPROFEN [Concomitant]
     Indication: BACK PAIN
     Dosage: 1OCT10-01OCT10,07OCT10-13OCT2010.
     Dates: start: 20101001, end: 20101013
  7. ORPHENADRINE CITRATE [Concomitant]
     Indication: ANXIETY
     Dosage: 2-4OCT10,5OCT10-13OCT2010
     Dates: start: 20101002, end: 20101013
  8. SCOPOLAMINE [Concomitant]
     Indication: BACK PAIN
     Dates: start: 20101001, end: 20101001
  9. DIAZEPAM [Concomitant]
     Indication: BACK PAIN
     Dates: start: 20101001, end: 20101001
  10. PHENERGAN [Concomitant]
     Indication: BACK PAIN
     Dates: start: 20101001, end: 20101001
  11. KETOPROFEN [Concomitant]
     Indication: ANXIETY
     Dosage: 1OCT10-01OCT10,07OCT10-13OCT2010.
     Dates: start: 20101001, end: 20101013
  12. COMBIVIR [Suspect]
     Dosage: 1 DF=150/300MG,LAST DOSE:04OCT2010
     Route: 048
     Dates: start: 20091019
  13. ATAZANAVIR [Suspect]
     Indication: HIV INFECTION
     Dosage: LAST DOSE:04OCT2010
     Route: 048
     Dates: start: 20100218
  14. SCOPOLAMINE [Concomitant]
     Indication: ANXIETY
     Dates: start: 20101001, end: 20101001
  15. DIPIRONE [Concomitant]
     Indication: BACK PAIN
     Dates: start: 20101001, end: 20101001
  16. ORPHENADRINE CITRATE [Concomitant]
     Indication: BACK PAIN
     Dosage: 2-4OCT10,5OCT10-13OCT2010
     Dates: start: 20101002, end: 20101013
  17. CAFFEINE + DIPYRONE [Concomitant]
     Indication: ANXIETY
     Dosage: 2OCT10-04OCT10,05OCT10-13OCT10
     Dates: start: 20101002, end: 20101013
  18. HYOSCINE HBR HYT [Concomitant]
     Indication: BACK PAIN
     Dosage: 02OCT10-04OCT10,5OCT10-13OCT10
     Dates: start: 20101002, end: 20101013
  19. RAMIPRIL [Concomitant]
     Indication: PROTEINURIA
     Dates: start: 20100920, end: 20101119
  20. METOCLOPRAMIDE [Concomitant]
     Indication: BACK PAIN
     Dates: start: 20101001, end: 20101001
  21. HYOSCINE HBR HYT [Concomitant]
     Indication: ANXIETY
     Dosage: 02OCT10-04OCT10,5OCT10-13OCT10
     Dates: start: 20101002, end: 20101013
  22. DIPIRONE [Concomitant]
     Indication: ANXIETY
     Dates: start: 20101001, end: 20101001
  23. MORPHINE [Concomitant]
     Indication: ANXIETY
     Dates: start: 20101001, end: 20101001
  24. PHENERGAN [Concomitant]
     Indication: ANXIETY
     Dates: start: 20101001, end: 20101001
  25. CODEINE PHOSPHATE AND ACETAMINOPHEN [Concomitant]
     Indication: BACK PAIN
     Dosage: 2-4OCT10,05OCT10-13OCT10.
     Dates: start: 20101002, end: 20101013
  26. CAFFEINE + DIPYRONE [Concomitant]
     Indication: BACK PAIN
     Dosage: 2OCT10-04OCT10,05OCT10-13OCT10
     Dates: start: 20101002, end: 20101013
  27. CODEINE PHOSPHATE AND ACETAMINOPHEN [Concomitant]
     Indication: ANXIETY
     Dosage: 2-4OCT10,05OCT10-13OCT10.
     Dates: start: 20101002, end: 20101013
  28. CIPROFLOXACIN [Concomitant]
     Indication: INFECTION
     Dates: start: 20101002, end: 20101004

REACTIONS (1)
  - RENAL COLIC [None]
